FAERS Safety Report 5096957-9 (Version None)
Quarter: 2006Q3

REPORT INFORMATION
  Report Type: 
  Country: None (occurrence: None)
  Receive Date: 20060831
  Receipt Date: 20060824
  Transmission Date: 20061208
  Serious: Yes (Hospitalization, Disabling)
  Sender: FDA-Public Use
  Company Number: OSCN-PR-0608S-0249

PATIENT
  Age: 50 Year
  Sex: Male

DRUGS (6)
  1. OMNISCAN [Suspect]
     Indication: DRUG USE FOR UNKNOWN INDICATION
     Dosage: 40 ML SINGLE DOSE IV
     Route: 042
  2. IMMUNOGLOBULIN ANTIHEPATITIS B (HEPATITIS B IMMUNE GLOBULIN) [Concomitant]
  3. SIMULECT [Concomitant]
  4. TACROLIMUS [Concomitant]
  5. MYCOPHENOLATE MOFETIL [Concomitant]
  6. PREDNISONE TAB [Concomitant]

REACTIONS (1)
  - NEPHROGENIC FIBROSING DERMOPATHY [None]
